FAERS Safety Report 22537419 (Version 1)
Quarter: 2023Q2

REPORT INFORMATION
  Report Type: Other
  Country: KR (occurrence: None)
  Receive Date: 20230608
  Receipt Date: 20230608
  Transmission Date: 20230721
  Serious: Yes (Other)
  Sender: FDA-Public Use
  Company Number: KR-ROCHE-3358977

PATIENT

DRUGS (1)
  1. PRALSETINIB [Suspect]
     Active Substance: PRALSETINIB
     Indication: Non-small cell lung cancer
     Route: 048

REACTIONS (25)
  - Neutropenia [Unknown]
  - Pneumonitis [Unknown]
  - Pulmonary embolism [Unknown]
  - Asthenia [Unknown]
  - Anaemia [Unknown]
  - Leukopenia [Unknown]
  - Thrombocytopenia [Unknown]
  - Aspartate aminotransferase increased [Unknown]
  - Alanine aminotransferase increased [Unknown]
  - Blood alkaline phosphatase increased [Unknown]
  - Hyperbilirubinaemia [Unknown]
  - Blood creatinine increased [Unknown]
  - Blood creatine phosphokinase increased [Unknown]
  - Hyponatraemia [Unknown]
  - Oedema [Unknown]
  - Constipation [Unknown]
  - Diarrhoea [Unknown]
  - Extrapulmonary tuberculosis [Unknown]
  - Mucosal inflammation [Unknown]
  - Stomatitis [Unknown]
  - Pyrexia [Unknown]
  - Hypertension [Unknown]
  - Rash [Unknown]
  - Headache [Unknown]
  - Flank pain [Unknown]
